FAERS Safety Report 6524465-4 (Version None)
Quarter: 2009Q4

REPORT INFORMATION
  Report Type: 
  Country: None (occurrence: None)
  Receive Date: 20091231
  Receipt Date: 20091231
  Transmission Date: 20100525
  Serious: No
  Sender: FDA-Public Use
  Company Number: None

PATIENT
  Sex: Female
  Weight: 107.0489 kg

DRUGS (2)
  1. LYRICA [Suspect]
     Indication: FIBROMYALGIA
     Dosage: 75MG 4XDAILY PO
     Route: 048
     Dates: start: 20060101, end: 20091229
  2. LYRICA [Suspect]
     Indication: SPINAL OSTEOARTHRITIS
     Dosage: 75MG 4XDAILY PO
     Route: 048
     Dates: start: 20060101, end: 20091229

REACTIONS (17)
  - COGNITIVE DISORDER [None]
  - DISCOMFORT [None]
  - DISTURBANCE IN ATTENTION [None]
  - DIZZINESS [None]
  - FALL [None]
  - FEAR [None]
  - HALO VISION [None]
  - HEADACHE [None]
  - HEART RATE INCREASED [None]
  - HUNGER [None]
  - LOSS OF CONSCIOUSNESS [None]
  - SPINAL DISORDER [None]
  - TREMOR [None]
  - TUNNEL VISION [None]
  - VISION BLURRED [None]
  - VISUAL ACUITY REDUCED [None]
  - WEIGHT INCREASED [None]
